FAERS Safety Report 5152949-2 (Version None)
Quarter: 2006Q4

REPORT INFORMATION
  Report Type: 
  Country: None (occurrence: None)
  Receive Date: 20061114
  Receipt Date: 20061114
  Transmission Date: 20070319
  Serious: Yes (Hospitalization)
  Sender: FDA-Public Use
  Company Number: None

PATIENT
  Age: 84 Year
  Sex: Female

DRUGS (2)
  1. OMNISCAN [Suspect]
     Indication: FISTULA
     Dosage: ONCE IV BOLUS
     Route: 040
     Dates: start: 20060911, end: 20060911
  2. OMNISCAN [Suspect]
     Indication: SCAN WITH CONTRAST
     Dosage: ONCE IV BOLUS
     Route: 040
     Dates: start: 20060911, end: 20060911

REACTIONS (6)
  - CHEST PAIN [None]
  - DYSPNOEA [None]
  - HYPERSENSITIVITY [None]
  - RASH [None]
  - SWELLING [None]
  - TENDERNESS [None]
